FAERS Safety Report 26119680 (Version 1)
Quarter: 2025Q4

REPORT INFORMATION
  Report Type: Spontaneous
  Country: EU (occurrence: EU)
  Receive Date: 20251204
  Receipt Date: 20251204
  Transmission Date: 20260118
  Serious: Yes (Hospitalization, Other)
  Sender: GENMAB
  Company Number: EU-ABBVIE-6568964

PATIENT
  Age: 81 Year
  Sex: Female

DRUGS (1)
  1. EPCORITAMAB [Suspect]
     Active Substance: EPCORITAMAB
     Indication: Diffuse large B-cell lymphoma
     Route: 058

REACTIONS (4)
  - Diffuse large B-cell lymphoma [Unknown]
  - Pulmonary embolism [Unknown]
  - Incorrect product administration duration [Unknown]
  - Drug ineffective [Unknown]
